FAERS Safety Report 5429115-6 (Version None)
Quarter: 2007Q3

REPORT INFORMATION
  Report Type: 
  Country: None (occurrence: None)
  Receive Date: 20070829
  Receipt Date: 20070820
  Transmission Date: 20080115
  Serious: Yes (Hospitalization, Other)
  Sender: FDA-Public Use
  Company Number: US-JNJFOC-20061100156

PATIENT
  Sex: Female
  Weight: 1.59 kg

DRUGS (5)
  1. REMICADE [Suspect]
  2. REMICADE [Suspect]
  3. REMICADE [Suspect]
  4. REMICADE [Suspect]
     Indication: DRUG EXPOSURE DURING PREGNANCY
  5. PRENATAL VITAMINS [Concomitant]

REACTIONS (1)
  - PREMATURE BABY [None]
